FAERS Safety Report 10286748 (Version 2)
Quarter: 2014Q4

REPORT INFORMATION
  Report Type: Spontaneous
  Country: IT (occurrence: IT)
  Receive Date: 20140709
  Receipt Date: 20141017
  Transmission Date: 20150528
  Serious: No
  Sender: FDA-Public Use
  Company Number: IT-B.I. PHARMACEUTICALS,INC./RIDGEFIELD-2014-BI-31021IT

PATIENT
  Age: 73 Year
  Sex: Female

DRUGS (5)
  1. NEXIUM [Concomitant]
     Active Substance: ESOMEPRAZOLE MAGNESIUM
     Indication: PRODUCT USED FOR UNKNOWN INDICATION
     Dosage: 1 POSOLOGIC UNIT
     Route: 065
     Dates: start: 20120101, end: 20140523
  2. CATAPRESAN [Suspect]
     Active Substance: CLONIDINE
     Indication: SALIVARY HYPERSECRETION
     Dosage: 150 NR
     Route: 048
     Dates: start: 20140523, end: 20140523
  3. DOBREN [Suspect]
     Active Substance: SULPIRIDE
     Indication: DYSTHYMIC DISORDER
     Dosage: 1 POSOLOGIC UNIT
     Route: 048
     Dates: start: 20130201, end: 20140523
  4. EUTIROX [Concomitant]
     Active Substance: LEVOTHYROXINE SODIUM
     Indication: HYPOTHYROIDISM
     Dosage: 1 POSOLOGIC UNIT
     Route: 048
     Dates: start: 20100101, end: 20140523
  5. PASADEN [Concomitant]
     Active Substance: ETIZOLAM
     Indication: ANXIETY DISORDER
     Dosage: 1 POSOLOGIC UNIT
     Route: 065
     Dates: start: 20130101, end: 20140523

REACTIONS (3)
  - Product use issue [Recovered/Resolved]
  - Hypotension [Recovered/Resolved]
  - Drug interaction [Recovered/Resolved]

NARRATIVE: CASE EVENT DATE: 20140523
